FAERS Safety Report 23657044 (Version 1)
Quarter: 2024Q1

REPORT INFORMATION
  Report Type: Spontaneous
  Country: US (occurrence: US)
  Receive Date: 20240321
  Receipt Date: 20240321
  Transmission Date: 20240410
  Serious: No
  Sender: FDA-Public Use
  Company Number: US-AMNEAL PHARMACEUTICALS-2023-AMRX-00935

PATIENT

DRUGS (4)
  1. PRIMIDONE [Suspect]
     Active Substance: PRIMIDONE
     Indication: Essential tremor
     Dosage: 50 MILLIGRAM
     Route: 065
  2. PRIMIDONE [Suspect]
     Active Substance: PRIMIDONE
     Dosage: 100 MILLIGRAM, QD
     Route: 065
  3. PRIMIDONE [Suspect]
     Active Substance: PRIMIDONE
     Dosage: 25 MILLIGRAM, QD
     Route: 065
  4. TOPIRAMATE [Concomitant]
     Active Substance: TOPIRAMATE
     Indication: Essential tremor
     Dosage: UNK
     Route: 065

REACTIONS (2)
  - Therapeutic product effect decreased [Unknown]
  - Wrong technique in product usage process [Unknown]
